FAERS Safety Report 14057056 (Version 1)
Quarter: 2017Q4

REPORT INFORMATION
  Report Type: Not Available
  Country: JP (occurrence: JP)
  Receive Date: 20171006
  Receipt Date: 20171006
  Transmission Date: 20180321
  Serious: Yes (Other)
  Sender: FDA-Public Use
  Company Number: JP-ANIPHARMA-2017-JP-000083

PATIENT
  Age: 62 Year
  Sex: Female

DRUGS (4)
  1. RISPERIDONE (NON-SPECIFIC) [Suspect]
     Active Substance: RISPERIDONE
  2. NITRAZEPAM [Concomitant]
     Active Substance: NITRAZEPAM
  3. CLONAZEPAM. [Concomitant]
     Active Substance: CLONAZEPAM
  4. QUETIAPINE FUMERATE [Suspect]
     Active Substance: QUETIAPINE FUMARATE

REACTIONS (2)
  - Retinal vein occlusion [Unknown]
  - Macular oedema [Unknown]
